FAERS Safety Report 10070167 (Version 1)
Quarter: 2014Q2

REPORT INFORMATION
  Report Type: Spontaneous
  Country: US (occurrence: None)
  Receive Date: 20140409
  Receipt Date: 20140409
  Transmission Date: 20141212
  Serious: Yes (Other)
  Sender: FDA-Public Use
  Company Number: None

PATIENT
  Age: 63 Year
  Sex: Female

DRUGS (2)
  1. RIBAVIRIN [Suspect]
     Indication: HEPATITIS C
     Route: 048
     Dates: start: 20140313, end: 20140407
  2. SOVALDI [Suspect]
     Indication: HEPATITIS C
     Route: 048
     Dates: start: 20140331, end: 20140407

REACTIONS (8)
  - Oral pain [None]
  - Skin exfoliation [None]
  - Lip exfoliation [None]
  - Anaemia [None]
  - Asthenia [None]
  - Dizziness [None]
  - Fatigue [None]
  - Dyspnoea [None]
